FAERS Safety Report 6532832-8 (Version None)
Quarter: 2010Q1

REPORT INFORMATION
  Report Type: 
  Country: None (occurrence: None)
  Receive Date: 20100111
  Receipt Date: 20091230
  Transmission Date: 20100710
  Serious: Yes (Life-Threatening, Hospitalization, Other)
  Sender: FDA-Public Use
  Company Number: US-ELI_LILLY_AND_COMPANY-US201001000088

PATIENT
  Sex: Male

DRUGS (7)
  1. PROZAC [Suspect]
     Indication: BIPOLAR I DISORDER
     Dosage: 40 MG, DAILY (1/D)
     Route: 065
     Dates: start: 19980101, end: 20050101
  2. PROZAC [Suspect]
     Dosage: 40 MG, DAILY (1/D)
     Route: 065
     Dates: start: 20090901, end: 20091216
  3. PROZAC [Suspect]
     Dosage: 60 MG, DAILY (1/D)
     Route: 065
     Dates: start: 20091201, end: 20091201
  4. LAMICTIN [Concomitant]
     Dosage: 0.25 MG, 2/D
     Route: 065
  5. XANAX [Concomitant]
     Dosage: 0.25 MG, 3/D
     Route: 065
  6. RISPERIDONE [Concomitant]
     Dosage: UNK, UNKNOWN
     Route: 065
  7. VALIUM [Concomitant]
     Dosage: UNK, UNKNOWN
     Route: 065

REACTIONS (15)
  - BLINDNESS TRANSIENT [None]
  - CATARACT [None]
  - COAGULOPATHY [None]
  - COMA [None]
  - CONFUSIONAL STATE [None]
  - DEPRESSED MOOD [None]
  - DEPRESSION [None]
  - DIABETES MELLITUS [None]
  - EMOTIONAL DISORDER [None]
  - EYE DISORDER [None]
  - FEELING ABNORMAL [None]
  - OFF LABEL USE [None]
  - SEDATION [None]
  - SUICIDE ATTEMPT [None]
  - TRANSIENT ISCHAEMIC ATTACK [None]
